FAERS Safety Report 4930050-8 (Version None)
Quarter: 2006Q1

REPORT INFORMATION
  Report Type: 
  Country: None (occurrence: None)
  Receive Date: 20060228
  Receipt Date: 20060216
  Transmission Date: 20060701
  Serious: Yes (Hospitalization)
  Sender: FDA-Public Use
  Company Number: 2005BI010964

PATIENT
  Age: 47 Year
  Sex: Female
  Weight: 92.5338 kg

DRUGS (9)
  1. AVONEX [Suspect]
     Indication: MULTIPLE SCLEROSIS
     Dosage: 30 UG;QW;IM
     Route: 030
     Dates: start: 20050201, end: 20050501
  2. SYNTHROID [Concomitant]
  3. PROZAC [Concomitant]
  4. LIPITOR [Concomitant]
  5. ASPIRIN [Concomitant]
  6. NEURONTIN [Concomitant]
  7. REQUIP [Concomitant]
  8. GLUCOSAMINE VITAMIN [Concomitant]
  9. PRIM ROSE OIL [Concomitant]

REACTIONS (8)
  - CARDIAC DISORDER [None]
  - CORONARY ARTERY OCCLUSION [None]
  - HYPERTENSION [None]
  - MYOCARDIAL INFARCTION [None]
  - NECK PAIN [None]
  - PAIN IN JAW [None]
  - SOMNOLENCE [None]
  - STRESS [None]
